FAERS Safety Report 23904366 (Version 2)
Quarter: 2024Q3

REPORT INFORMATION
  Report Type: Spontaneous
  Country: US (occurrence: None)
  Receive Date: 20240527
  Receipt Date: 20240709
  Transmission Date: 20241017
  Serious: No
  Sender: ASTRAZENECA
  Company Number: 2024A114894

PATIENT
  Age: 70 Year
  Sex: Female

DRUGS (1)
  1. TEZSPIRE [Suspect]
     Active Substance: TEZEPELUMAB-EKKO
     Indication: Asthma
     Dosage: 210MG/ML EVERY FOUR WEEKS
     Route: 058
     Dates: start: 20240508

REACTIONS (3)
  - Rash [Unknown]
  - Paraesthesia [Unknown]
  - Erythema [Unknown]
